FAERS Safety Report 15290539 (Version 1)
Quarter: 2018Q3

REPORT INFORMATION
  Report Type: Spontaneous
  Country: ES (occurrence: ES)
  Receive Date: 20180817
  Receipt Date: 20180817
  Transmission Date: 20181010
  Serious: Yes (Other)
  Sender: FDA-Public Use
  Company Number: ES-TEVA-2018-ES-945676

PATIENT
  Age: 58 Year
  Sex: Male

DRUGS (1)
  1. DOXORUBICIN [Suspect]
     Active Substance: DOXORUBICIN
     Indication: FOLLICULAR THYROID CANCER
     Route: 042

REACTIONS (5)
  - Anaemia [Unknown]
  - Rash [Unknown]
  - Alopecia [Unknown]
  - Skin disorder [Unknown]
  - Leukopenia [Recovered/Resolved]
